FAERS Safety Report 5013886-7 (Version None)
Quarter: 2006Q2

REPORT INFORMATION
  Report Type: 
  Country: None (occurrence: None)
  Receive Date: 20060525
  Receipt Date: 20060516
  Transmission Date: 20061013
  Serious: Yes (Death)
  Sender: FDA-Public Use
  Company Number: GBWYE609208MAY06

PATIENT
  Age: 77 Year
  Sex: Male

DRUGS (13)
  1. RAPAMUNE [Suspect]
     Indication: IMMUNOSUPPRESSION
     Dosage: 6 MG 1X PER 1 DAY ORAL
     Route: 048
     Dates: start: 20050727, end: 20051128
  2. MYCOPHENOLATE MOFETIL [Suspect]
     Dosage: SEE IMAGE
     Route: 048
     Dates: start: 20050727, end: 20051001
  3. MYCOPHENOLATE MOFETIL [Suspect]
     Dosage: SEE IMAGE
     Route: 048
     Dates: start: 20051007
  4. PREDNISOLONE [Concomitant]
  5. ASPIRIN [Concomitant]
  6. LANSOPRAZOLE [Concomitant]
  7. SODIUM BICARBONATE IN PLASTIC CONTAINER [Concomitant]
  8. AMLODIPINE [Concomitant]
  9. ATENOLOL [Concomitant]
  10. FOLIC ACID [Concomitant]
  11. LATANOPROST [Concomitant]
  12. FUROSEMIDE [Concomitant]
  13. NYSTATIN [Concomitant]

REACTIONS (14)
  - AORTIC VALVE SCLEROSIS [None]
  - BRONCHIECTASIS [None]
  - DILATATION ATRIAL [None]
  - FEAR [None]
  - GENERAL PHYSICAL HEALTH DETERIORATION [None]
  - HAEMOGLOBIN DECREASED [None]
  - INTERSTITIAL LUNG DISEASE [None]
  - PNEUMOCYSTIS JIROVECI PNEUMONIA [None]
  - PNEUMONIA PRIMARY ATYPICAL [None]
  - PULMONARY OEDEMA [None]
  - RENAL FAILURE [None]
  - RESPIRATORY FAILURE [None]
  - TRANSPLANT FAILURE [None]
  - WEIGHT DECREASED [None]
